FAERS Safety Report 9839383 (Version 3)
Quarter: 2014Q1

REPORT INFORMATION
  Report Type: Spontaneous
  Country: US (occurrence: US)
  Receive Date: 20140123
  Receipt Date: 20140321
  Transmission Date: 20141002
  Serious: Yes (Hospitalization, Other)
  Sender: FDA-Public Use
  Company Number: US-009507513-1401USA010236

PATIENT
  Sex: Female

DRUGS (4)
  1. SINGULAIR [Suspect]
     Indication: UPPER-AIRWAY COUGH SYNDROME
     Dosage: UNK
     Route: 048
     Dates: start: 1999, end: 2013
  2. SINGULAIR [Suspect]
     Indication: ASTHMA
  3. SINGULAIR [Suspect]
     Indication: UPPER-AIRWAY COUGH SYNDROME
     Dosage: UNK
     Route: 048
     Dates: start: 2013
  4. SINGULAIR [Suspect]
     Indication: ASTHMA

REACTIONS (3)
  - Hip arthroplasty [Unknown]
  - Drug intolerance [Unknown]
  - Therapeutic response decreased [Unknown]
